FAERS Safety Report 4331723-0 (Version None)
Quarter: 2004Q2

REPORT INFORMATION
  Report Type: 
  Country: None (occurrence: None)
  Receive Date: 20040405
  Receipt Date: 20030424
  Transmission Date: 20050107
  Serious: No
  Sender: FDA-Public Use
  Company Number: US-GLAXOSMITHKLINE-A0406016A

PATIENT
  Age: 60 Year
  Sex: Female

DRUGS (6)
  1. FLOVENT [Suspect]
     Indication: ASTHMA
     Route: 055
  2. INTAL [Concomitant]
  3. VENTOLIN [Concomitant]
  4. DECONGESTANT [Concomitant]
  5. ANTIHISTAMINE [Concomitant]
  6. ALLERGY INJECTIONS [Concomitant]

REACTIONS (1)
  - DRUG INEFFECTIVE [None]
